FAERS Safety Report 6226979-3 (Version None)
Quarter: 2009Q2

REPORT INFORMATION
  Report Type: 
  Country: None (occurrence: None)
  Receive Date: 20090612
  Receipt Date: 20090604
  Transmission Date: 20091009
  Serious: Yes (Hospitalization)
  Sender: FDA-Public Use
  Company Number: DE-ABBOTT-09P-062-0578033-00

PATIENT
  Sex: Female
  Weight: 73 kg

DRUGS (5)
  1. HUMIRA [Suspect]
     Indication: OVERLAP SYNDROME
     Route: 058
     Dates: start: 20051101
  2. HUMIRA [Suspect]
     Indication: POLYARTHRITIS
  3. IMMUNOSPORIN [Concomitant]
     Indication: OVERLAP SYNDROME
     Dosage: 150MG DAILY
     Route: 048
     Dates: start: 20040601, end: 20080801
  4. IMMUNOSPORIN [Concomitant]
     Indication: POLYARTHRITIS
  5. CYCLOSPORINE [Concomitant]
     Indication: DRUG USE FOR UNKNOWN INDICATION
     Dosage: 150MG DAILY
     Dates: end: 20080801

REACTIONS (2)
  - PANCREATITIS ACUTE [None]
  - SEPSIS [None]
